FAERS Safety Report 9585681 (Version 2)
Quarter: 2013Q4

REPORT INFORMATION
  Report Type: Report from Study
  Country: GB (occurrence: GB)
  Receive Date: 20131003
  Receipt Date: 20131104
  Transmission Date: 20140711
  Serious: Yes (Death)
  Sender: FDA-Public Use
  Company Number: GB-AMGEN-GBRCT2013069261

PATIENT
  Age: 67 Year
  Sex: Male

DRUGS (4)
  1. ETANERCEPT [Suspect]
     Indication: RHEUMATOID ARTHRITIS
     Dosage: 25 MG, UNK
     Route: 065
     Dates: start: 20050727
  2. HYDROXYCHLOROQUINE [Concomitant]
     Dosage: UNK UNK, UNK
  3. SULPHASALAZINE [Concomitant]
     Dosage: UNK UNK, UNK
  4. METHOTREXATE [Concomitant]
     Dosage: UNK UNK, UNK

REACTIONS (3)
  - Peripheral ischaemia [Fatal]
  - Peripheral vascular disorder [Fatal]
  - Glioblastoma multiforme [Fatal]
